FAERS Safety Report 5201561-5 (Version None)
Quarter: 2007Q1

REPORT INFORMATION
  Report Type: 
  Country: None (occurrence: None)
  Receive Date: 20070108
  Receipt Date: 20061230
  Transmission Date: 20070707
  Serious: Yes (Hospitalization)
  Sender: FDA-Public Use
  Company Number: FR-PFIZER INC-2007000397

PATIENT
  Age: 78 Year
  Sex: Female

DRUGS (14)
  1. ALDACTONE [Suspect]
     Dosage: DAILY DOSE:50MG
     Route: 048
  2. TRAMADOL HCL [Suspect]
     Indication: BACK PAIN
     Dosage: DAILY DOSE:200MG
     Route: 048
     Dates: start: 20061002, end: 20061005
  3. VASTEN [Suspect]
     Dosage: DAILY DOSE:40MG
     Route: 048
  4. OMEPRAZOLE [Suspect]
     Dosage: DAILY DOSE:20MG
     Route: 048
  5. PREVISCAN [Concomitant]
     Dosage: DAILY DOSE:10MG
     Route: 048
  6. SOTALOL HCL [Concomitant]
     Dosage: DAILY DOSE:160MG
     Route: 048
  7. TRIVASTAL [Concomitant]
     Dosage: DAILY DOSE:50MG
     Route: 048
  8. TENORMIN [Concomitant]
     Dosage: DAILY DOSE:50MG
     Route: 048
  9. HEXAQUINE [Concomitant]
     Dosage: TEXT:2 DF
  10. ASPIRIN [Concomitant]
     Dosage: DAILY DOSE:75MG
     Route: 048
  11. ACETAMINOPHEN [Concomitant]
     Dosage: TEXT:2 DF
     Route: 048
  12. PERCUTALGINE [Concomitant]
     Route: 058
  13. DIPROSALIC [Concomitant]
     Route: 058
  14. DAIVONEX [Concomitant]

REACTIONS (5)
  - AGITATION [None]
  - CONFUSIONAL STATE [None]
  - DEHYDRATION [None]
  - HYPONATRAEMIA [None]
  - VOMITING [None]
